FAERS Safety Report 6203284-2 (Version None)
Quarter: 2009Q2

REPORT INFORMATION
  Report Type: 
  Country: None (occurrence: None)
  Receive Date: 20090527
  Receipt Date: 20090515
  Transmission Date: 20091009
  Serious: Yes (Hospitalization)
  Sender: FDA-Public Use
  Company Number: FR-JNJFOC-20090504197

PATIENT
  Age: 62 Year
  Sex: Female

DRUGS (7)
  1. REMICADE [Suspect]
     Route: 042
  2. REMICADE [Suspect]
     Route: 042
  3. REMICADE [Suspect]
     Indication: RHEUMATOID ARTHRITIS
     Route: 042
  4. ENBREL [Suspect]
     Indication: RHEUMATOID ARTHRITIS
     Route: 058
  5. HUMIRA [Suspect]
     Indication: RHEUMATOID ARTHRITIS
     Route: 042
  6. MABTHERA [Suspect]
     Indication: RHEUMATOID ARTHRITIS
     Route: 042
  7. SALAZOPYRINE [Concomitant]
     Route: 048

REACTIONS (3)
  - BREAST CANCER [None]
  - DYSPNOEA [None]
  - HYPERSENSITIVITY [None]
